FAERS Safety Report 9755484 (Version 1)
Quarter: 2013Q4

REPORT INFORMATION
  Report Type: Spontaneous
  Country: US (occurrence: US)
  Receive Date: 20131213
  Receipt Date: 20131213
  Transmission Date: 20140711
  Serious: No
  Sender: FDA-Public Use
  Company Number: US-GLAXOSMITHKLINE-A1018861A

PATIENT
  Age: 70 Year
  Sex: Female

DRUGS (5)
  1. WALGREENS NICOTINE TRANSDERMAL SYSTEM PATCH CLEAR, 21MG [Suspect]
     Indication: EX-TOBACCO USER
     Dosage: 21MG UNKNOWN
     Route: 065
     Dates: start: 20130202
  2. NICOTINE [Suspect]
     Indication: EX-TOBACCO USER
     Route: 065
  3. OXYGEN [Concomitant]
  4. ANTI-ANXIETY MED- NAME UNKNOWN [Concomitant]
  5. FLUOXETINE [Concomitant]

REACTIONS (5)
  - Application site rash [Recovered/Resolved]
  - Application site pruritus [Recovered/Resolved]
  - Application site reaction [Recovered/Resolved]
  - Hypersensitivity [Recovered/Resolved]
  - Drug administration error [Unknown]
